FAERS Safety Report 11285082 (Version 1)
Quarter: 2015Q3

REPORT INFORMATION
  Report Type: Spontaneous
  Country: US (occurrence: US)
  Receive Date: 20150720
  Receipt Date: 20150720
  Transmission Date: 20151125
  Serious: No
  Sender: FDA-Public Use
  Company Number: US-TAKEDA-2015TUS002579

PATIENT
  Sex: Female
  Weight: 72 kg

DRUGS (4)
  1. BABY ASA [Concomitant]
     Active Substance: ASPIRIN
     Dosage: UNK, QD
     Route: 065
  2. ENTYVIO [Suspect]
     Active Substance: VEDOLIZUMAB
     Indication: COLITIS ULCERATIVE
     Dosage: 300 MG, UNK
     Route: 042
     Dates: start: 20141104
  3. CELEXA                             /01400501/ [Concomitant]
     Dosage: 40 MG, QD
     Route: 065
  4. LIALDA [Concomitant]
     Active Substance: MESALAMINE
     Dosage: 1.2 MG, BID
     Route: 065

REACTIONS (1)
  - Fibromyalgia [Unknown]
